FAERS Safety Report 11221160 (Version 2)
Quarter: 2015Q3

REPORT INFORMATION
  Report Type: Spontaneous
  Country: US (occurrence: US)
  Receive Date: 20150626
  Receipt Date: 20150702
  Transmission Date: 20151125
  Serious: Yes (Other)
  Sender: FDA-Public Use
  Company Number: US-TEVA-573436USA

PATIENT
  Age: 58 Year
  Sex: Female

DRUGS (1)
  1. COPAXONE [Suspect]
     Active Substance: GLATIRAMER ACETATE
     Indication: MULTIPLE SCLEROSIS
     Route: 065
     Dates: start: 20150605, end: 20150605

REACTIONS (8)
  - Swollen tongue [Unknown]
  - Pain in extremity [Not Recovered/Not Resolved]
  - Pruritus generalised [Recovered/Resolved]
  - Hypersensitivity [Unknown]
  - Hypoaesthesia [Unknown]
  - Feeling hot [Unknown]
  - Motor dysfunction [Unknown]
  - Pyrexia [Unknown]

NARRATIVE: CASE EVENT DATE: 201506
